FAERS Safety Report 15931964 (Version 1)
Quarter: 2019Q1

REPORT INFORMATION
  Report Type: Spontaneous
  Country: IT (occurrence: IT)
  Receive Date: 20190207
  Receipt Date: 20190207
  Transmission Date: 20190417
  Serious: Yes (Other)
  Sender: FDA-Public Use
  Company Number: IT-SA-2019SA032796

PATIENT
  Age: 59 Year
  Sex: Male
  Weight: 73 kg

DRUGS (4)
  1. OXALIPLATIN. [Suspect]
     Active Substance: OXALIPLATIN
     Indication: COLON CANCER RECURRENT
     Dosage: 185 MG, QCY
     Route: 042
     Dates: start: 20180712, end: 20180712
  2. CAPECITABINE. [Suspect]
     Active Substance: CAPECITABINE
     Indication: COLON CANCER RECURRENT
     Dosage: 3000 MG, QCY
     Route: 048
     Dates: start: 20180712, end: 20180712
  3. CAPECITABINE. [Suspect]
     Active Substance: CAPECITABINE
     Dosage: 3000 MG, QCY
     Route: 048
     Dates: start: 20181206, end: 20181206
  4. OXALIPLATIN. [Suspect]
     Active Substance: OXALIPLATIN
     Dosage: 185 MG, QCY
     Route: 042
     Dates: start: 20181206, end: 20181206

REACTIONS (2)
  - Lipase increased [Recovering/Resolving]
  - Amylase increased [Recovering/Resolving]

NARRATIVE: CASE EVENT DATE: 20180821
